FAERS Safety Report 18098114 (Version 2)
Quarter: 2020Q3

REPORT INFORMATION
  Report Type: Other
  Country: US (occurrence: US)
  Receive Date: 20200731
  Receipt Date: 20200810
  Transmission Date: 20201103
  Serious: Yes (Other)
  Sender: FDA-Public Use
  Company Number: US-ROCHE-2648799

PATIENT

DRUGS (2)
  1. HEPARIN [Suspect]
     Active Substance: HEPARIN SODIUM
     Indication: PELVIC VENOUS THROMBOSIS
     Dosage: 500 UNITS/H
     Route: 042
  2. ALTEPLASE. [Suspect]
     Active Substance: ALTEPLASE
     Indication: PELVIC VENOUS THROMBOSIS
     Dosage: TYPICALLY USING 6 TO 10 MG OF TPA
     Route: 042

REACTIONS (4)
  - Acute kidney injury [Unknown]
  - Abdominal wall haematoma [Unknown]
  - Catheter site haematoma [Unknown]
  - Haemorrhage [Unknown]
